FAERS Safety Report 11749230 (Version 1)
Quarter: 2015Q4

REPORT INFORMATION
  Report Type: Spontaneous
  Country: CH (occurrence: CH)
  Receive Date: 20151118
  Receipt Date: 20151118
  Transmission Date: 20160304
  Serious: Yes (Hospitalization)
  Sender: FDA-Public Use
  Company Number: CH-ROCHE-1659825

PATIENT
  Age: 13 Year
  Sex: Female
  Weight: 41.8 kg

DRUGS (7)
  1. CALCIMAGON-D3 [Concomitant]
     Active Substance: CALCIUM\CHOLECALCIFEROL
     Route: 048
  2. ROCEPHIN [Suspect]
     Active Substance: CEFTRIAXONE SODIUM
     Indication: PRODUCT USED FOR UNKNOWN INDICATION
     Route: 042
     Dates: start: 20150911, end: 20150913
  3. SOLU-MEDROL [Suspect]
     Active Substance: METHYLPREDNISOLONE SODIUM SUCCINATE
     Indication: JUVENILE IDIOPATHIC ARTHRITIS
     Dosage: METHYLPREDNISOLON I.V. AM 11.9.2015, 12.9.2015 UND 13.9.2015
     Route: 042
  4. NAPROXEN. [Concomitant]
     Active Substance: NAPROXEN
     Indication: JUVENILE IDIOPATHIC ARTHRITIS
     Dosage: DRUG REPORTED AS PROXEN
     Route: 048
  5. SANDIMMUN [Concomitant]
     Active Substance: CYCLOSPORINE
     Indication: JUVENILE IDIOPATHIC ARTHRITIS
     Dosage: FIRST AS OF 11 SEPTEMBER 2015 100 MG 2XDAILY IV, THEN 150 MG IN THE MORNING, 200 MG IN THE EVENING?O
     Route: 048
     Dates: start: 20150911
  6. KINERET [Concomitant]
     Active Substance: ANAKINRA
     Indication: JUVENILE IDIOPATHIC ARTHRITIS
     Dosage: 1XDAILY 100 MG, THEN INCREASED TO 200 MG DURING THE COURSE
     Route: 058
  7. ANTRA MUPS [Concomitant]
     Active Substance: OMEPRAZOLE MAGNESIUM
     Indication: PROPHYLAXIS
     Route: 048

REACTIONS (1)
  - Hypothermia [Recovered/Resolved]

NARRATIVE: CASE EVENT DATE: 20150911
